FAERS Safety Report 10897354 (Version 3)
Quarter: 2015Q2

REPORT INFORMATION
  Report Type: Spontaneous
  Country: US (occurrence: US)
  Receive Date: 20150309
  Receipt Date: 20150421
  Transmission Date: 20150821
  Serious: No
  Sender: FDA-Public Use
  Company Number: US-PFIZER INC-2015084403

PATIENT
  Age: 10 Year
  Sex: Male
  Weight: 29 kg

DRUGS (1)
  1. QUILLIVANT XR [Suspect]
     Active Substance: METHYLPHENIDATE HYDROCHLORIDE
     Indication: ATTENTION DEFICIT/HYPERACTIVITY DISORDER
     Dosage: 4 ML, 1X/DAY
     Route: 048
     Dates: start: 20150122

REACTIONS (5)
  - Drug effect incomplete [Not Recovered/Not Resolved]
  - Decreased appetite [Not Recovered/Not Resolved]
  - Gastroenteritis viral [Unknown]
  - Weight decreased [Not Recovered/Not Resolved]
  - Binge eating [Unknown]

NARRATIVE: CASE EVENT DATE: 2015
